FAERS Safety Report 16894721 (Version 1)
Quarter: 2019Q4

REPORT INFORMATION
  Report Type: Spontaneous
  Country: US (occurrence: US)
  Receive Date: 20191008
  Receipt Date: 20191008
  Transmission Date: 20200122
  Serious: No
  Sender: FDA-Public Use
  Company Number: US-INDIVIOR US-INDV-114520-2018

PATIENT
  Sex: Male

DRUGS (1)
  1. SUBOXONE [Suspect]
     Active Substance: BUPRENORPHINE HYDROCHLORIDE\NALOXONE HYDROCHLORIDE
     Indication: PRODUCT USED FOR UNKNOWN INDICATION
     Dosage: UNK
     Route: 065
     Dates: start: 2018

REACTIONS (8)
  - Pain in extremity [Unknown]
  - Adverse event [Unknown]
  - Weight increased [Unknown]
  - Joint swelling [Unknown]
  - Fatigue [Unknown]
  - Dyspnoea [Unknown]
  - Peripheral swelling [Unknown]
  - Agitation [Unknown]

NARRATIVE: CASE EVENT DATE: 2018
